FAERS Safety Report 14012098 (Version 1)
Quarter: 2017Q3

REPORT INFORMATION
  Report Type: Spontaneous
  Country: US (occurrence: US)
  Receive Date: 20170926
  Receipt Date: 20170926
  Transmission Date: 20171128
  Serious: Yes (Other)
  Sender: FDA-Public Use
  Company Number: None

PATIENT
  Sex: Male
  Weight: 75.15 kg

DRUGS (3)
  1. NEUPOGEN [Concomitant]
     Active Substance: FILGRASTIM
  2. NINLARO [Suspect]
     Active Substance: IXAZOMIB
     Dosage: ?          OTHER FREQUENCY:DAYS 1, 8, 15;?
     Route: 048
     Dates: start: 20160920, end: 20170926
  3. NEXAVAR [Concomitant]
     Active Substance: SORAFENIB

REACTIONS (1)
  - Disease progression [None]
